FAERS Safety Report 10049874 (Version 1)
Quarter: 2014Q1

REPORT INFORMATION
  Report Type: Spontaneous
  Country: US (occurrence: None)
  Receive Date: 20140331
  Receipt Date: 20140331
  Transmission Date: 20141002
  Serious: Yes (Other)
  Sender: FDA-Public Use
  Company Number: None

PATIENT
  Age: 62 Year
  Sex: Male
  Weight: 106 kg

DRUGS (4)
  1. NIACIN [Suspect]
  2. CEFAZOLIN [Concomitant]
  3. CARVEDILOL [Concomitant]
  4. CHLORTHALIDONE [Concomitant]

REACTIONS (3)
  - Pruritus [None]
  - Nausea [None]
  - Flushing [None]
